FAERS Safety Report 4756133-3 (Version None)
Quarter: 2005Q3

REPORT INFORMATION
  Report Type: 
  Country: None (occurrence: None)
  Receive Date: 20050830
  Receipt Date: 20050824
  Transmission Date: 20060218
  Serious: Yes (Life-Threatening)
  Sender: FDA-Public Use
  Company Number: 2005SE04820

PATIENT
  Age: 10265 Day
  Sex: Female

DRUGS (4)
  1. XYLOCAINE [Suspect]
     Indication: ANAESTHESIA
     Dosage: 20 MG/ML
     Route: 008
     Dates: start: 20050802, end: 20050802
  2. FENTANYL [Concomitant]
     Indication: ANAESTHESIA
     Route: 008
     Dates: start: 20050802, end: 20050802
  3. NESACAINE [Concomitant]
     Indication: ANAESTHESIA
     Route: 008
     Dates: start: 20050802, end: 20050802
  4. ALFENTANIL [Concomitant]
     Indication: ANAESTHESIA
     Route: 008
     Dates: start: 20050802, end: 20050802

REACTIONS (2)
  - DEPRESSED LEVEL OF CONSCIOUSNESS [None]
  - RESPIRATORY ARREST [None]
